FAERS Safety Report 8910422 (Version 1)
Quarter: 2012Q4

REPORT INFORMATION
  Report Type: 
  Country: GB (occurrence: GB)
  Receive Date: 20121115
  Receipt Date: 20121115
  Transmission Date: 20130627
  Serious: Yes (Hospitalization, Other)
  Sender: FDA-Public Use
  Company Number: GB-NOVOPROD-363552

PATIENT
  Age: 43 Year
  Sex: Female
  Weight: 107 kg

DRUGS (3)
  1. VICTOZA [Suspect]
     Indication: TYPE 2 DIABETES MELLITUS
     Dosage: 1.2 mg, qd
     Route: 058
     Dates: start: 201203, end: 20120913
  2. CLOTRIMAZOLE [Concomitant]
     Indication: CANDIDIASIS
     Dosage: PRN
  3. METFORMIN [Concomitant]
     Indication: DIABETES MELLITUS
     Dosage: 1 g, bid
     Route: 048

REACTIONS (2)
  - Pancreatitis acute [Recovered/Resolved]
  - Amylase increased [Recovered/Resolved]
